FAERS Safety Report 4381836-2 (Version None)
Quarter: 2004Q2

REPORT INFORMATION
  Report Type: 
  Country: None (occurrence: None)
  Receive Date: 20040614
  Receipt Date: 20040525
  Transmission Date: 20050107
  Serious: Yes (Death, Hospitalization)
  Sender: FDA-Public Use
  Company Number: A-US2003-03420

PATIENT
  Age: 77 Year
  Sex: Female

DRUGS (2)
  1. TRACLEER [Suspect]
     Indication: PULMONARY HYPERTENSION
     Dosage: SEE IMAGE
     Route: 048
     Dates: end: 20030101
  2. TRACLEER [Suspect]
     Indication: PULMONARY HYPERTENSION
     Dosage: SEE IMAGE
     Route: 048
     Dates: start: 20030909

REACTIONS (15)
  - BLOOD PRESSURE FLUCTUATION [None]
  - CEREBROVASCULAR ACCIDENT [None]
  - CERUMEN IMPACTION [None]
  - CORONARY ARTERY DISEASE [None]
  - CORONARY ARTERY OCCLUSION [None]
  - DILATATION ATRIAL [None]
  - HAEMODIALYSIS [None]
  - MYOCARDIAL INFARCTION [None]
  - NEUROLOGICAL EXAMINATION ABNORMAL [None]
  - OTITIS EXTERNA [None]
  - RENAL FAILURE ACUTE [None]
  - RESPIRATORY FAILURE [None]
  - SEPSIS [None]
  - STAPHYLOCOCCAL BACTERAEMIA [None]
  - VENTRICULAR HYPERTROPHY [None]
